FAERS Safety Report 23994887 (Version 1)
Quarter: 2024Q2

REPORT INFORMATION
  Report Type: Spontaneous
  Country: US (occurrence: None)
  Receive Date: 20240619
  Receipt Date: 20240619
  Transmission Date: 20240716
  Serious: No
  Sender: FDA-Public Use
  Company Number: None

PATIENT
  Age: 66 Year
  Sex: Female
  Weight: 65.25 kg

DRUGS (2)
  1. MELOXICAM [Suspect]
     Active Substance: MELOXICAM
     Indication: Spinal compression fracture
  2. LOSARTAN [Concomitant]
     Active Substance: LOSARTAN

REACTIONS (7)
  - Abdominal pain upper [None]
  - Dyspepsia [None]
  - Vomiting [None]
  - Burn oral cavity [None]
  - Dehydration [None]
  - Diarrhoea [None]
  - Weight decreased [None]

NARRATIVE: CASE EVENT DATE: 20240603
